FAERS Safety Report 9768636 (Version 1)
Quarter: 2013Q4

REPORT INFORMATION
  Report Type: Spontaneous
  Country: US (occurrence: US)
  Receive Date: 20131218
  Receipt Date: 20131218
  Transmission Date: 20140711
  Serious: No
  Sender: FDA-Public Use
  Company Number: US-009507513-1312USA006401

PATIENT
  Sex: Female

DRUGS (1)
  1. NUVARING [Suspect]
     Dosage: UNK
     Route: 067
     Dates: end: 2013

REACTIONS (3)
  - Chest pain [Unknown]
  - Inappropriate schedule of drug administration [Unknown]
  - Abnormal withdrawal bleeding [Unknown]
